FAERS Safety Report 12367018 (Version 2)
Quarter: 2016Q3

REPORT INFORMATION
  Report Type: Report from Study
  Country: US (occurrence: US)
  Receive Date: 20160513
  Receipt Date: 20160812
  Transmission Date: 20161109
  Serious: Yes (Other)
  Sender: FDA-Public Use
  Company Number: US-BAYER-2016-087601

PATIENT
  Age: 52 Year
  Sex: Female

DRUGS (11)
  1. BETASERON [Suspect]
     Active Substance: INTERFERON BETA-1B
     Indication: MULTIPLE SCLEROSIS
     Dosage: 8 MIU, QOD
     Route: 058
     Dates: start: 20071019, end: 20150201
  2. VITAMIN D [Concomitant]
     Active Substance: CHOLECALCIFEROL
     Dosage: UNK, BID
     Route: 048
  3. VITAMIN D [Concomitant]
     Active Substance: CHOLECALCIFEROL
     Dosage: 4 DF, OW
     Route: 048
  4. CALCIUM [Concomitant]
     Active Substance: CALCIUM
     Dosage: UNK, BID
     Route: 048
  5. NEURONTIN [Concomitant]
     Active Substance: GABAPENTIN
     Dosage: 1 DF, TID
     Route: 048
  6. VITAMIN D [Concomitant]
     Active Substance: CHOLECALCIFEROL
     Dosage: UNK, 4IW
     Route: 048
  7. PROZAC [Concomitant]
     Active Substance: FLUOXETINE HYDROCHLORIDE
     Dosage: UNK, HS
     Route: 048
  8. SYMBICORT [Concomitant]
     Active Substance: BUDESONIDE\FORMOTEROL FUMARATE DIHYDRATE
     Dosage: UNK, 160/4.5 BID
     Route: 045
  9. TRAZODONE [Concomitant]
     Active Substance: TRAZODONE HYDROCHLORIDE
     Dosage: 150 MG, ADD^L SIG ADD^L SIG BY MOUTH
     Route: 048
  10. BETASERON [Suspect]
     Active Substance: INTERFERON BETA-1B
     Indication: MULTIPLE SCLEROSIS
     Dosage: 0.3 MG, QOD
     Route: 058
  11. PROZAC [Concomitant]
     Active Substance: FLUOXETINE HYDROCHLORIDE
     Dosage: 1 DF, QHS
     Route: 048

REACTIONS (42)
  - Pain in extremity [None]
  - Tremor [Recovered/Resolved]
  - Muscular weakness [None]
  - Ataxia [None]
  - Facial pain [None]
  - Chest discomfort [None]
  - Spinal osteoarthritis [None]
  - Musculoskeletal disorder [None]
  - Pain [None]
  - Dysphagia [None]
  - Neck pain [None]
  - Middle insomnia [None]
  - Arthralgia [None]
  - Fatigue [None]
  - Facial pain [None]
  - Choking [None]
  - Nystagmus [None]
  - Dysmetria [None]
  - Multiple sclerosis relapse [None]
  - Fatigue [None]
  - Multiple sclerosis relapse [None]
  - Sensory level [None]
  - Facial pain [None]
  - Paraesthesia [None]
  - Initial insomnia [None]
  - Multiple sclerosis relapse [None]
  - Hyperreflexia [None]
  - Neck pain [None]
  - Hyperreflexia [Recovered/Resolved]
  - Multiple sclerosis relapse [None]
  - Multiple sclerosis [None]
  - Dysphagia [None]
  - Multiple sclerosis relapse [None]
  - Multiple sclerosis [None]
  - Multiple sclerosis relapse [Recovered/Resolved]
  - Rheumatoid arthritis [None]
  - Rheumatoid factor increased [None]
  - Oesophageal spasm [None]
  - Osteoarthritis [None]
  - Fatigue [None]
  - Spondylolysis [None]
  - Tremor [None]

NARRATIVE: CASE EVENT DATE: 20071002
